FAERS Safety Report 7004875-1 (Version None)
Quarter: 2010Q3

REPORT INFORMATION
  Report Type: 
  Country: None (occurrence: None)
  Receive Date: 20100921
  Receipt Date: 20100909
  Transmission Date: 20110219
  Serious: Yes (Hospitalization)
  Sender: FDA-Public Use
  Company Number: DE-SANOFI-AVENTIS-2010SA054010

PATIENT
  Age: 49 Year
  Sex: Female

DRUGS (2)
  1. CLEXANE [Suspect]
     Indication: DEEP VEIN THROMBOSIS
     Route: 065
     Dates: start: 20100801, end: 20100801
  2. CLEXANE [Suspect]
     Route: 065
     Dates: start: 20100801

REACTIONS (4)
  - BLOOD PRESSURE DECREASED [None]
  - CIRCULATORY COLLAPSE [None]
  - NAUSEA [None]
  - TREMOR [None]
